FAERS Safety Report 24091698 (Version 1)
Quarter: 2024Q3

REPORT INFORMATION
  Report Type: Spontaneous
  Country: US (occurrence: US)
  Receive Date: 20240715
  Receipt Date: 20240715
  Transmission Date: 20241017
  Serious: Yes (Other)
  Sender: MYLAN
  Company Number: US-MYLANLABS-2024M1065172

PATIENT
  Sex: Female

DRUGS (11)
  1. GABAPENTIN [Suspect]
     Active Substance: GABAPENTIN
     Indication: Endometriosis
     Dosage: UNK (DOUBLED HER DOSE)
     Route: 065
     Dates: start: 202402, end: 2024
  2. GABAPENTIN [Suspect]
     Active Substance: GABAPENTIN
     Dosage: UNK (TAPERING OFF)
     Route: 065
     Dates: start: 202404, end: 2024
  3. QBREXZA [Suspect]
     Active Substance: GLYCOPYRRONIUM TOSYLATE
     Indication: Hyperhidrosis
     Dosage: 1 DOSAGE FORM (ONE WIPE UNDER EACH ARM), QOD (EVERY 48 HOURS)
     Route: 061
     Dates: start: 202403, end: 20240609
  4. MINOXIDIL [Concomitant]
     Active Substance: MINOXIDIL
     Dosage: UNK
     Route: 048
  5. DUTASTERIDE [Concomitant]
     Active Substance: DUTASTERIDE
     Dosage: UNK
     Route: 048
  6. WELLBUTRIN [Concomitant]
     Active Substance: BUPROPION HYDROCHLORIDE
     Dosage: UNK
     Route: 048
  7. TOPAMAX [Concomitant]
     Active Substance: TOPIRAMATE
     Dosage: UNK
     Route: 048
  8. CYMBALTA [Concomitant]
     Active Substance: DULOXETINE HYDROCHLORIDE
     Dosage: UNK
     Route: 048
  9. RELPAX [Concomitant]
     Active Substance: ELETRIPTAN HYDROBROMIDE
     Dosage: UNK, PRN (AS NEEDED)
     Route: 048
  10. MELOXICAM [Concomitant]
     Active Substance: MELOXICAM
     Dosage: UNK, PRN (AS NEEDED)
     Route: 048
  11. PHENTERMINE [Concomitant]
     Active Substance: PHENTERMINE
     Dosage: UNK; TEMPORARY USE
     Route: 048

REACTIONS (15)
  - Ophthalmoplegia [Not Recovered/Not Resolved]
  - Urinary retention [Not Recovered/Not Resolved]
  - Abdominal pain lower [Not Recovered/Not Resolved]
  - Temperature regulation disorder [Not Recovered/Not Resolved]
  - Presyncope [Not Recovered/Not Resolved]
  - Visual impairment [Not Recovered/Not Resolved]
  - Pulmonary calcification [Not Recovered/Not Resolved]
  - Dry throat [Not Recovered/Not Resolved]
  - Dysuria [Not Recovered/Not Resolved]
  - Dry skin [Not Recovered/Not Resolved]
  - Mydriasis [Not Recovered/Not Resolved]
  - Vision blurred [Not Recovered/Not Resolved]
  - Abdominal pain [Not Recovered/Not Resolved]
  - Dry mouth [Not Recovered/Not Resolved]
  - Constipation [Not Recovered/Not Resolved]

NARRATIVE: CASE EVENT DATE: 20240403
